FAERS Safety Report 13349864 (Version 1)
Quarter: 2017Q1

REPORT INFORMATION
  Report Type: Spontaneous
  Country: US (occurrence: US)
  Receive Date: 20170318
  Receipt Date: 20170318
  Transmission Date: 20170429
  Serious: Yes (Disabling, Other)
  Sender: FDA-Public Use
  Company Number: None

PATIENT
  Sex: Female
  Weight: 51.75 kg

DRUGS (4)
  1. PROMETHAZINE [Concomitant]
     Active Substance: PROMETHAZINE\PROMETHAZINE HYDROCHLORIDE
  2. VITAMIN D3 [Concomitant]
     Active Substance: CHOLECALCIFEROL
  3. NEXIUM [Suspect]
     Active Substance: ESOMEPRAZOLE MAGNESIUM
     Indication: GASTROOESOPHAGEAL REFLUX DISEASE
     Dosage: ?          QUANTITY:2 CAPSULE(S);?
     Route: 048
  4. TYLENOL EXTRA STRENGTH [Concomitant]
     Active Substance: ACETAMINOPHEN

REACTIONS (13)
  - Depression [None]
  - Dyspepsia [None]
  - Condition aggravated [None]
  - Anxiety [None]
  - Dysmenorrhoea [None]
  - Suicidal ideation [None]
  - Insomnia [None]
  - Nausea [None]
  - Diarrhoea [None]
  - Dizziness [None]
  - Hot flush [None]
  - Gallbladder disorder [None]
  - Memory impairment [None]
